FAERS Safety Report 9129461 (Version 1)
Quarter: 2013Q1

REPORT INFORMATION
  Report Type: Spontaneous
  Country: US (occurrence: US)
  Receive Date: 20130228
  Receipt Date: 20130228
  Transmission Date: 20140127
  Serious: Yes (Other)
  Sender: FDA-Public Use
  Company Number: US-GLAXOSMITHKLINE-A1014034A

PATIENT
  Sex: Male

DRUGS (1)
  1. ADVAIR [Suspect]
     Indication: LUNG DISORDER
     Route: 055

REACTIONS (5)
  - Cholecystitis infective [Unknown]
  - Gallbladder operation [Unknown]
  - Pain [Unknown]
  - Drug administration error [Unknown]
  - Catheterisation cardiac [Unknown]
